FAERS Safety Report 20078796 (Version 3)
Quarter: 2024Q2

REPORT INFORMATION
  Report Type: Report from Study
  Country: CA (occurrence: CA)
  Receive Date: 20211117
  Receipt Date: 20240506
  Transmission Date: 20240716
  Serious: Yes (Other)
  Sender: FDA-Public Use
  Company Number: CA-ABBVIE-21K-028-4160563-00

PATIENT
  Sex: Female

DRUGS (2)
  1. HUMIRA [Suspect]
     Active Substance: ADALIMUMAB
     Indication: Crohn^s disease
     Dosage: FORM STRENGTH: 40 MG
     Route: 058
     Dates: start: 20160602
  2. HUMIRA [Suspect]
     Active Substance: ADALIMUMAB
     Dosage: FORM STRENGTH: 40 MG
     Route: 058

REACTIONS (13)
  - Obstruction [Unknown]
  - Anorectal discomfort [Unknown]
  - Defaecation urgency [Unknown]
  - Ulcer [Unknown]
  - Constipation [Unknown]
  - Diarrhoea [Unknown]
  - Faeces soft [Unknown]
  - Rectal haemorrhage [Not Recovered/Not Resolved]
  - General symptom [Unknown]
  - Abdominal pain [Not Recovered/Not Resolved]
  - Abdominal pain lower [Unknown]
  - COVID-19 [Recovering/Resolving]
  - Aphthous ulcer [Unknown]

NARRATIVE: CASE EVENT DATE: 20210101
